FAERS Safety Report 21447670 (Version 6)
Quarter: 2025Q4

REPORT INFORMATION
  Report Type: Report from Study
  Country: JP (occurrence: JP)
  Receive Date: 20221012
  Receipt Date: 20251226
  Transmission Date: 20260118
  Serious: Yes (Death, Other)
  Sender: ABBVIE
  Company Number: JP-TAKEDA-2021TJP111606

PATIENT
  Age: 74 Year
  Sex: Male

DRUGS (4)
  1. LEUPROLIDE ACETATE [Suspect]
     Active Substance: LEUPROLIDE ACETATE
     Indication: Bulbospinal muscular atrophy congenital
     Route: 058
     Dates: start: 20200630, end: 20250303
  2. LANSOPRAZOLE [Concomitant]
     Active Substance: LANSOPRAZOLE
     Indication: Bulbospinal muscular atrophy congenital
     Route: 065
  3. CARBOCYSTEINE [Concomitant]
     Active Substance: CARBOCYSTEINE
     Indication: Bulbospinal muscular atrophy congenital
     Route: 065
     Dates: start: 20200630
  4. IRBESARTAN [Concomitant]
     Active Substance: IRBESARTAN
     Indication: Bulbospinal muscular atrophy congenital
     Dates: start: 20200630

REACTIONS (2)
  - Metastases to liver [Fatal]
  - Colon cancer [Fatal]

NARRATIVE: CASE EVENT DATE: 20240722
